FAERS Safety Report 16559703 (Version 5)
Quarter: 2019Q4

REPORT INFORMATION
  Report Type: Report from Study
  Country: CO (occurrence: CO)
  Receive Date: 20190711
  Receipt Date: 20191217
  Transmission Date: 20200122
  Serious: Yes (Other)
  Sender: FDA-Public Use
  Company Number: CO-SA-2019SA185704

PATIENT
  Age: 26 Year
  Sex: Female
  Weight: 68 kg

DRUGS (2)
  1. AGALSIDASE BETA [Suspect]
     Active Substance: AGALSIDASE BETA
     Indication: FABRY^S DISEASE
     Dosage: 50 MG, Q15D
     Route: 041
     Dates: start: 20150326, end: 201903
  2. AGALSIDASE BETA [Suspect]
     Active Substance: AGALSIDASE BETA
     Dosage: 68 MG, Q15D
     Route: 041
     Dates: start: 201903, end: 20190622

REACTIONS (8)
  - Vision blurred [Recovered/Resolved]
  - Syncope [Recovered/Resolved]
  - Weight increased [Unknown]
  - Exposure during pregnancy [Unknown]
  - Headache [Recovered/Resolved]
  - Disease progression [Unknown]
  - Malaise [Recovered/Resolved]
  - Dizziness [Recovered/Resolved]

NARRATIVE: CASE EVENT DATE: 2015
